FAERS Safety Report 26188576 (Version 1)
Quarter: 2025Q4

REPORT INFORMATION
  Report Type: Spontaneous
  Country: AU (occurrence: AU)
  Receive Date: 20251222
  Receipt Date: 20251222
  Transmission Date: 20260117
  Serious: Yes (Other)
  Sender: ELI LILLY AND COMPANY
  Company Number: AU-ELI_LILLY_AND_COMPANY-AU202512021005

PATIENT

DRUGS (3)
  1. FLUOXETINE HYDROCHLORIDE [Interacting]
     Active Substance: FLUOXETINE HYDROCHLORIDE
     Indication: Product used for unknown indication
     Dosage: 40 MG, UNKNOWN
     Route: 065
  2. FLUOXETINE HYDROCHLORIDE [Interacting]
     Active Substance: FLUOXETINE HYDROCHLORIDE
     Dosage: 50 MG
     Route: 065
  3. SPRAVATO [Interacting]
     Active Substance: ESKETAMINE
     Indication: Product used for unknown indication
     Dosage: 84 MG, UNKNOWN
     Route: 045

REACTIONS (3)
  - Psychotic disorder [Unknown]
  - Drug level increased [Unknown]
  - Drug interaction [Unknown]
